FAERS Safety Report 18186685 (Version 1)
Quarter: 2020Q3

REPORT INFORMATION
  Report Type: Spontaneous
  Country: US (occurrence: US)
  Receive Date: 20200822
  Receipt Date: 20200822
  Transmission Date: 20201103
  Serious: Yes (Hospitalization)
  Sender: FDA-Public Use
  Company Number: None

PATIENT
  Age: 83 Year
  Sex: Female
  Weight: 59.3 kg

DRUGS (1)
  1. DOXIL [Suspect]
     Active Substance: DOXORUBICIN HYDROCHLORIDE
     Dates: end: 20200812

REACTIONS (4)
  - Colonic abscess [None]
  - Ascites [None]
  - Colitis [None]
  - Large intestinal obstruction [None]

NARRATIVE: CASE EVENT DATE: 20200617
